FAERS Safety Report 6621554-0 (Version None)
Quarter: 2010Q1

REPORT INFORMATION
  Report Type: 
  Country: None (occurrence: None)
  Receive Date: 20100223
  Receipt Date: 20100112
  Transmission Date: 20100710
  Serious: No
  Sender: FDA-Public Use
  Company Number: 004416

PATIENT
  Sex: Female
  Weight: 86.3 kg

DRUGS (14)
  1. CIMZIA [Suspect]
     Indication: CROHN'S DISEASE
     Dosage: (400 MG SUBCUTANEOUS)
     Route: 058
     Dates: start: 20090701
  2. ESTRADIOL [Concomitant]
  3. FLEXERIL [Concomitant]
  4. CYMBALTA [Concomitant]
  5. XANAX [Concomitant]
  6. PRILOSEC [Concomitant]
  7. LOMOTIL [Concomitant]
  8. KLOR-CON [Concomitant]
  9. FOLIC ACID [Concomitant]
  10. FLONASE [Concomitant]
  11. GABAPENTIN [Concomitant]
  12. CHOLESTYRAMINE [Concomitant]
  13. FERREX [Concomitant]
  14. HYDROCHLOROTHIAZIDE [Concomitant]

REACTIONS (3)
  - ARTHRALGIA [None]
  - OEDEMA PERIPHERAL [None]
  - POLYP [None]
